FAERS Safety Report 5466680-7 (Version None)
Quarter: 2007Q3

REPORT INFORMATION
  Report Type: 
  Country: None (occurrence: None)
  Receive Date: 20070920
  Receipt Date: 20070906
  Transmission Date: 20080115
  Serious: Yes (Disabling)
  Sender: FDA-Public Use
  Company Number: 161394ISR

PATIENT
  Age: 63 Year
  Sex: Female

DRUGS (8)
  1. PACLITAXEL [Suspect]
     Indication: OVARIAN CANCER
     Dosage: INTRAVENOUS
     Route: 042
     Dates: start: 20070426, end: 20070724
  2. CARBOPLATIN [Concomitant]
  3. DICYCLOMINE HCL [Concomitant]
  4. METOCLOPRAMIDE [Concomitant]
  5. DOXYLAMINE [Concomitant]
  6. PYRIDOXINE HCL [Concomitant]
  7. FLUCONAZOLE [Concomitant]
  8. DOSULEPIN [Concomitant]

REACTIONS (1)
  - TOXIC SKIN ERUPTION [None]
